FAERS Safety Report 9915457 (Version 2)
Quarter: 2014Q1

REPORT INFORMATION
  Report Type: Spontaneous
  Country: US (occurrence: US)
  Receive Date: 20140221
  Receipt Date: 20140221
  Transmission Date: 20141002
  Serious: Yes (Other)
  Sender: FDA-Public Use
  Company Number: US-JNJCP-30000202298

PATIENT
  Age: 49 Year
  Sex: Female

DRUGS (11)
  1. JOHNSONS BABY PRODUCTS [Suspect]
     Route: 061
  2. SHOWER TO SHOWER POWDER [Suspect]
     Route: 061
  3. CLOBETASOL CREAM, 0.05%, [Concomitant]
     Indication: ECZEMA
     Dosage: TWO TIMES IN A DAY
  4. NEXIUM [Concomitant]
     Indication: PEPTIC ULCER
     Dosage: 40MG, DAILY
  5. TYLENOL [Concomitant]
     Indication: PAIN
     Dosage: IN EVERY FOUR HOURS
  6. LAMISIL [Concomitant]
     Indication: MYCOSIS FUNGOIDES
     Dosage: 250MG, DAILY
  7. BIAXINXL DOSEPAK [Concomitant]
     Indication: UPPER RESPIRATORY TRACT INFECTION
     Dosage: 500MG, AS DIRECTED
  8. ZYRTEC D [Concomitant]
     Indication: UPPER RESPIRATORY TRACT INFECTION
     Dosage: TWO TIMES IN A DAY
  9. ENDAL HD PLUS [Concomitant]
     Indication: UPPER RESPIRATORY TRACT INFECTION
     Dosage: TWO TEASPOON, AS NEEDED
  10. NASONEX [Suspect]
     Indication: PHARYNGITIS
     Dosage: ONE TO TWO PUFFS, DAILY
  11. NASONEX [Concomitant]
     Indication: PHARYNGITIS
     Dosage: ONE TO TWO PUFFS, DAILY

REACTIONS (1)
  - Ovarian cancer [Not Recovered/Not Resolved]
